FAERS Safety Report 22526811 (Version 1)
Quarter: 2023Q2

REPORT INFORMATION
  Report Type: Spontaneous
  Country: KR (occurrence: KR)
  Receive Date: 20230606
  Receipt Date: 20230606
  Transmission Date: 20230721
  Serious: Yes (Death, Other)
  Sender: FDA-Public Use
  Company Number: KR-ORGANON-O2305KOR003155

PATIENT
  Age: 74 Year
  Sex: Female
  Weight: 50.9 kg

DRUGS (12)
  1. COZAAR [Suspect]
     Active Substance: LOSARTAN POTASSIUM
     Indication: Essential hypertension
     Dosage: 50 MILLIGRAM, 1 DAY (FILM COATED TABLETS)
     Route: 048
     Dates: start: 20181025, end: 20181107
  2. AMLODIPINE BESYLATE [Concomitant]
     Active Substance: AMLODIPINE BESYLATE
     Indication: Essential hypertension
     Dosage: 5 MILLIGRAM, 1 DAY (UNCOATED TABLET)
     Route: 048
     Dates: start: 20181022, end: 20181025
  3. METFORMIN HYDROCHLORIDE [Concomitant]
     Active Substance: METFORMIN HYDROCHLORIDE
     Indication: Diabetes mellitus
     Dosage: 500 MILLIGRAM, 1 DAY
     Route: 048
     Dates: start: 20181025, end: 20181107
  4. BISMUTH SUBCITRATE\RANITIDINE HYDROCHLORIDE\SUCRALFATE [Concomitant]
     Active Substance: BISMUTH SUBCITRATE\RANITIDINE HYDROCHLORIDE\SUCRALFATE
     Dosage: 1 FORMULATION 0.5 DAY
     Route: 048
     Dates: start: 20181025, end: 20181107
  5. ALLOPURINOL [Concomitant]
     Active Substance: ALLOPURINOL
     Dosage: 100 MILLIGRAM, 0.5 DAY (UNCOATED TABLET)
     Route: 048
     Dates: start: 20181025, end: 20181104
  6. ACETAMINOPHEN [Concomitant]
     Active Substance: ACETAMINOPHEN
     Dosage: 1300 MILLIGRAM, ONE DAY (SLOW-RELEASE FILM-COATED TABLET)
     Route: 048
     Dates: start: 20181023, end: 20181027
  7. PROPACETAMOL HYDROCHLORIDE [Concomitant]
     Active Substance: PROPACETAMOL HYDROCHLORIDE
     Dosage: 1 GRAM (POWDER INJECTION FOR SOLUTION) (ROUTE: VEIN)
     Route: 042
     Dates: start: 20181022, end: 20181023
  8. ACETAMINOPHEN\TRAMADOL HYDROCHLORIDE [Concomitant]
     Active Substance: ACETAMINOPHEN\TRAMADOL HYDROCHLORIDE
     Dosage: 1 FORMULATION 0.5 DAY (SLOW-RELEASE FILM-COATED TABLETS)
     Route: 048
     Dates: start: 20181025, end: 20181105
  9. MOXIFLOXACIN HYDROCHLORIDE [Concomitant]
     Active Substance: MOXIFLOXACIN HYDROCHLORIDE
     Dosage: 400 MILLIGRAM, 1 DAY (ROUTE: VEIN) (SOLUTION INJECTION)
     Route: 042
     Dates: start: 20181020, end: 20181101
  10. TRAMADOL HYDROCHLORIDE [Concomitant]
     Active Substance: TRAMADOL HYDROCHLORIDE
     Dosage: 50 MILLIGRAM (ROUTE: VEIN) (SOLUTION INJECTION)
     Route: 042
     Dates: start: 20181020, end: 20181112
  11. DECITABINE [Concomitant]
     Active Substance: DECITABINE
     Indication: Acute myeloid leukaemia
     Dosage: 32 MILLIGRAM, 1 DAY (LYOPHILIZED POWDER INJECTION FOR SOLUTION) (ROUTE: VEIN)
     Route: 042
     Dates: start: 20181030, end: 20181102
  12. CEFEPIME HYDROCHLORIDE [Concomitant]
     Active Substance: CEFEPIME HYDROCHLORIDE
     Dosage: 2 GRAM, 0.33 DAY (POWDER INJECTION FOR SOLUTION) (ROUTE: VEIN)
     Route: 042
     Dates: start: 20181101, end: 20181105

REACTIONS (5)
  - Decreased appetite [Recovering/Resolving]
  - Pyrexia [Not Recovered/Not Resolved]
  - Acute kidney injury [Fatal]
  - Pneumonia [Fatal]
  - Bacterial infection [Fatal]

NARRATIVE: CASE EVENT DATE: 20181103
